FAERS Safety Report 21177013 (Version 1)
Quarter: 2022Q3

REPORT INFORMATION
  Report Type: Spontaneous
  Country: DK (occurrence: DK)
  Receive Date: 20220805
  Receipt Date: 20220805
  Transmission Date: 20221027
  Serious: Yes (Other)
  Sender: FDA-Public Use
  Company Number: None

PATIENT
  Age: 54 Year
  Sex: Female

DRUGS (1)
  1. ALTEPLASE [Suspect]
     Active Substance: ALTEPLASE
     Indication: Thrombolysis
     Dosage: DOSAGE: UNKNOWN.
     Route: 042
     Dates: start: 20200902, end: 20200902

REACTIONS (5)
  - Vomiting [Recovering/Resolving]
  - Nausea [Recovering/Resolving]
  - Restlessness [Recovering/Resolving]
  - Headache [Recovering/Resolving]
  - Cerebral haemorrhage [Recovered/Resolved]

NARRATIVE: CASE EVENT DATE: 20200902
